FAERS Safety Report 22023157 (Version 1)
Quarter: 2023Q1

REPORT INFORMATION
  Report Type: Report from Study
  Country: US (occurrence: US)
  Receive Date: 20230223
  Receipt Date: 20230223
  Transmission Date: 20230418
  Serious: Yes (Death, Other)
  Sender: FDA-Public Use
  Company Number: US-SUN PHARMACEUTICAL INDUSTRIES LTD-2022R1-368574

PATIENT
  Age: 73 Year
  Sex: Female

DRUGS (1)
  1. SONIDEGIB [Suspect]
     Active Substance: SONIDEGIB
     Indication: Basal cell carcinoma
     Dosage: 200 MILLIGRAM, QD
     Route: 048
     Dates: start: 20220914, end: 20220927

REACTIONS (4)
  - Death [Fatal]
  - Muscle spasms [Unknown]
  - Oedema peripheral [Unknown]
  - Taste disorder [Unknown]

NARRATIVE: CASE EVENT DATE: 20221025
